FAERS Safety Report 23320350 (Version 1)
Quarter: 2023Q4

REPORT INFORMATION
  Report Type: Spontaneous
  Country: US (occurrence: US)
  Receive Date: 20231220
  Receipt Date: 20231220
  Transmission Date: 20240109
  Serious: No
  Sender: FDA-Public Use
  Company Number: US-PROVENTION BIO, INC.-US-PRAG-23-00081

PATIENT
  Age: 59 Year
  Sex: Female
  Weight: 54.795 kg

DRUGS (5)
  1. TZIELD [Suspect]
     Active Substance: TEPLIZUMAB-MZWV
     Indication: Diabetes prophylaxis
     Dosage: 104 MICROGRAM, SINGLE
     Route: 042
     Dates: start: 20230914, end: 20230914
  2. TZIELD [Suspect]
     Active Substance: TEPLIZUMAB-MZWV
     Dosage: 200 MICROGRAM, SINGLE
     Route: 042
     Dates: start: 20230915, end: 20230915
  3. TZIELD [Suspect]
     Active Substance: TEPLIZUMAB-MZWV
     Dosage: 400 MICROGRAM, SINGLE
     Route: 042
     Dates: start: 20230916, end: 20230916
  4. TZIELD [Suspect]
     Active Substance: TEPLIZUMAB-MZWV
     Dosage: 780 MICROGRAM, SINGLE
     Route: 042
     Dates: start: 20230917, end: 20230917
  5. TZIELD [Suspect]
     Active Substance: TEPLIZUMAB-MZWV
     Dosage: 1648 MICROGRAM, QD
     Route: 042
     Dates: start: 20230918, end: 20230927

REACTIONS (1)
  - Headache [Recovered/Resolved]

NARRATIVE: CASE EVENT DATE: 20230916
